FAERS Safety Report 24101713 (Version 2)
Quarter: 2025Q3

REPORT INFORMATION
  Report Type: Spontaneous
  Country: US (occurrence: US)
  Receive Date: 20240717
  Receipt Date: 20250715
  Transmission Date: 20251020
  Serious: No
  Sender: NOVO NORDISK
  Company Number: US-NOVOPROD-1219555

PATIENT
  Age: 64 Year
  Sex: Female

DRUGS (1)
  1. OZEMPIC [Suspect]
     Active Substance: SEMAGLUTIDE
     Indication: Type 2 diabetes mellitus
     Route: 058
     Dates: start: 20240417

REACTIONS (9)
  - Lethargy [Recovered/Resolved]
  - Myalgia [Recovered/Resolved]
  - Somnolence [Recovered/Resolved]
  - Illness [Recovering/Resolving]
  - Diarrhoea [Recovering/Resolving]
  - Vomiting [Recovered/Resolved]
  - Overdose [Recovered/Resolved]
  - Wrong technique in product usage process [Unknown]
  - Product communication issue [Unknown]

NARRATIVE: CASE EVENT DATE: 20240424
